FAERS Safety Report 18882165 (Version 1)
Quarter: 2021Q1

REPORT INFORMATION
  Report Type: Spontaneous
  Country: US (occurrence: US)
  Receive Date: 20210212
  Receipt Date: 20210212
  Transmission Date: 20210420
  Serious: No
  Sender: FDA-Public Use
  Company Number: US-BLUEPRINT MEDICINES CORPORATION-SP-US-2021-000114

PATIENT
  Sex: Female

DRUGS (1)
  1. AYVAKIT [Suspect]
     Active Substance: AVAPRITINIB
     Indication: GASTROINTESTINAL STROMAL TUMOUR
     Route: 048
     Dates: start: 20200214

REACTIONS (6)
  - Drug ineffective [Unknown]
  - Fall [Unknown]
  - Anxiety [Unknown]
  - Neoplasm progression [Unknown]
  - Dizziness [Unknown]
  - Memory impairment [Unknown]
